FAERS Safety Report 5261996-1 (Version None)
Quarter: 2007Q1

REPORT INFORMATION
  Report Type: 
  Country: None (occurrence: None)
  Receive Date: 20070308
  Receipt Date: 20070226
  Transmission Date: 20070707
  Serious: Yes (Hospitalization)
  Sender: FDA-Public Use
  Company Number: 237632K06USA

PATIENT
  Age: 65 Year
  Sex: Female
  Weight: 73.9363 kg

DRUGS (4)
  1. REBIF [Suspect]
     Indication: MULTIPLE SCLEROSIS
     Dosage: SEE IMAGE
     Route: 058
     Dates: start: 20060515, end: 20060101
  2. REBIF [Suspect]
     Indication: MULTIPLE SCLEROSIS
     Dosage: SEE IMAGE
     Route: 058
     Dates: start: 20060101
  3. LISINOPRIL (LISINOPRIL /00894001/) [Concomitant]
  4. EXTRA STRENGTH TYLENOL [Concomitant]

REACTIONS (1)
  - LUNG ADENOCARCINOMA [None]
